FAERS Safety Report 20067293 (Version 1)
Quarter: 2021Q4

REPORT INFORMATION
  Report Type: Spontaneous
  Country: GB (occurrence: GB)
  Receive Date: 20211115
  Receipt Date: 20211115
  Transmission Date: 20220303
  Serious: Yes (Hospitalization, Other)
  Sender: FDA-Public Use
  Company Number: GB-MHRA-EYC 00264996

PATIENT
  Age: 22 Year
  Sex: Female
  Weight: 45 kg

DRUGS (2)
  1. AZITHROMYCIN [Suspect]
     Active Substance: AZITHROMYCIN
     Indication: Mycoplasma infection
     Dosage: 250MG
     Route: 048
     Dates: start: 20211025, end: 20211029
  2. COLCHICINE [Suspect]
     Active Substance: COLCHICINE
     Indication: Pericarditis
     Dosage: 0.6MG 2X/DAY
     Route: 048
     Dates: start: 20210923

REACTIONS (3)
  - Dysmenorrhoea [Unknown]
  - Abdominal pain [Unknown]
  - Menstruation irregular [Unknown]

NARRATIVE: CASE EVENT DATE: 20210930
